FAERS Safety Report 12286526 (Version 1)
Quarter: 2016Q2

REPORT INFORMATION
  Report Type: Spontaneous
  Country: US (occurrence: US)
  Receive Date: 20160420
  Receipt Date: 20160420
  Transmission Date: 20160815
  Serious: No
  Sender: FDA-Public Use
  Company Number: ADR-2015-00982

PATIENT
  Age: 71 Year
  Sex: Female

DRUGS (7)
  1. EVOXAC [Suspect]
     Active Substance: CEVIMELINE HYDROCHLORIDE
  2. LIPITOR [Suspect]
     Active Substance: ATORVASTATIN CALCIUM
  3. TIZANIDINE. [Suspect]
     Active Substance: TIZANIDINE
  4. GABLOFEN [Suspect]
     Active Substance: BACLOFEN
     Dosage: 108.0 MCL/DAY
     Route: 037
     Dates: start: 20150415
  5. MYCELEX [Suspect]
     Active Substance: CLOTRIMAZOLE
  6. ATIVAN [Suspect]
     Active Substance: LORAZEPAM
  7. PROZAC [Suspect]
     Active Substance: FLUOXETINE HYDROCHLORIDE

REACTIONS (1)
  - No adverse event [Unknown]
